FAERS Safety Report 21741083 (Version 4)
Quarter: 2025Q1

REPORT INFORMATION
  Report Type: Report from Study
  Country: US (occurrence: US)
  Receive Date: 20221216
  Receipt Date: 20250208
  Transmission Date: 20250409
  Serious: Yes (Hospitalization)
  Sender: AVEO PHARMACEUTICALS
  Company Number: US-AVEO ONCOLOGY-2022-AVEO-US000541

PATIENT

DRUGS (17)
  1. FOTIVDA [Suspect]
     Active Substance: TIVOZANIB HYDROCHLORIDE
     Indication: Renal cell carcinoma
     Dosage: 1.34 MG, DAILY FOR 21 DAYS WITH 7 DAYS OFF (28-DAY CYCLE)
     Route: 048
  2. ACETAMINOPHEN [Concomitant]
     Active Substance: ACETAMINOPHEN
  3. CHOLESTYRAMINE [Concomitant]
     Active Substance: CHOLESTYRAMINE
  4. COLACE [Concomitant]
     Active Substance: DOCUSATE SODIUM
  5. DEPAKOTE [Concomitant]
     Active Substance: DIVALPROEX SODIUM
  6. DIAZEPAM [Concomitant]
     Active Substance: DIAZEPAM
  7. FLUCONAZOLE [Concomitant]
     Active Substance: FLUCONAZOLE
  8. GABAPENTIN [Concomitant]
     Active Substance: GABAPENTIN
  9. GLIPIZIDE [Concomitant]
     Active Substance: GLIPIZIDE
  10. HYDROCHLOROTHIAZIDE [Concomitant]
     Active Substance: HYDROCHLOROTHIAZIDE
  11. IBUPROFEN [Concomitant]
     Active Substance: IBUPROFEN
  12. KEPPRA [Concomitant]
     Active Substance: LEVETIRACETAM
  13. MELATONIN [Concomitant]
     Active Substance: MELATONIN
  14. METOPROLOL [Concomitant]
     Active Substance: METOPROLOL
  15. NORVASC [Concomitant]
     Active Substance: AMLODIPINE BESYLATE
  16. OXYCODONE [Concomitant]
     Active Substance: OXYCODONE
  17. RISPERIDONE [Concomitant]
     Active Substance: RISPERIDONE

REACTIONS (1)
  - Fall [Unknown]

NARRATIVE: CASE EVENT DATE: 20221026
